FAERS Safety Report 23984696 (Version 1)
Quarter: 2024Q2

REPORT INFORMATION
  Report Type: Spontaneous
  Country: US (occurrence: US)
  Receive Date: 20240618
  Receipt Date: 20240618
  Transmission Date: 20240716
  Serious: No
  Sender: FDA-Public Use
  Company Number: US-PHARMING-PHAUS2024000475

PATIENT

DRUGS (1)
  1. RUCONEST [Suspect]
     Active Substance: CONESTAT ALFA
     Indication: Hereditary angioedema
     Dosage: 3400 IU, AS NEEDED
     Route: 042
     Dates: start: 202302

REACTIONS (3)
  - Condition aggravated [Unknown]
  - Sensitivity to weather change [Unknown]
  - Weight decreased [Unknown]
